FAERS Safety Report 4316237-6 (Version None)
Quarter: 2004Q1

REPORT INFORMATION
  Report Type: 
  Country: None (occurrence: None)
  Receive Date: 20040312
  Receipt Date: 20040129
  Transmission Date: 20041129
  Serious: Yes (Other)
  Sender: FDA-Public Use
  Company Number: JP-ROCHE-358158

PATIENT
  Age: 62 Year
  Sex: Female

DRUGS (4)
  1. TAMIFLU [Suspect]
     Route: 048
     Dates: start: 20040128, end: 20040128
  2. SIMVASTATIN [Concomitant]
     Indication: HYPERLIPIDAEMIA
     Route: 048
     Dates: start: 20001218
  3. CEFZON [Concomitant]
     Indication: PROPHYLAXIS
     Route: 048
     Dates: start: 20040128, end: 20040128
  4. DASEN [Concomitant]
     Indication: PROPHYLAXIS
     Route: 048
     Dates: start: 20040128, end: 20040128

REACTIONS (1)
  - SHOCK [None]
